FAERS Safety Report 6399289-1 (Version None)
Quarter: 2009Q4

REPORT INFORMATION
  Report Type: 
  Country: None (occurrence: None)
  Receive Date: 20091014
  Receipt Date: 20091002
  Transmission Date: 20100525
  Serious: Yes (Other)
  Sender: FDA-Public Use
  Company Number: US-BIOGENIDEC-2009BI031885

PATIENT
  Age: 27 Year
  Sex: Female

DRUGS (2)
  1. AVONEX [Suspect]
     Indication: MULTIPLE SCLEROSIS
     Route: 030
     Dates: start: 20070220, end: 20080717
  2. AVONEX [Suspect]
     Route: 030
     Dates: start: 20090105

REACTIONS (3)
  - BENIGN HYDATIDIFORM MOLE [None]
  - BLOOD HUMAN CHORIONIC GONADOTROPIN INCREASED [None]
  - DRUG EXPOSURE DURING PREGNANCY [None]
